FAERS Safety Report 6838859-0 (Version None)
Quarter: 2010Q3

REPORT INFORMATION
  Report Type: 
  Country: None (occurrence: None)
  Receive Date: 20100713
  Receipt Date: 20070720
  Transmission Date: 20110219
  Serious: No
  Sender: FDA-Public Use
  Company Number: US-PFIZER INC-2007043606

PATIENT
  Sex: Female
  Weight: 56.7 kg

DRUGS (4)
  1. CHANTIX [Suspect]
     Indication: SMOKING CESSATION THERAPY
     Dates: start: 20070513, end: 20070521
  2. ALPHAGAN [Concomitant]
     Indication: GLAUCOMA
  3. XALATAN [Concomitant]
     Indication: GLAUCOMA
  4. PRILOSEC [Concomitant]
     Indication: GASTROOESOPHAGEAL REFLUX DISEASE

REACTIONS (4)
  - FEELING HOT [None]
  - MALAISE [None]
  - NAUSEA [None]
  - SOMNOLENCE [None]
